FAERS Safety Report 9242821 (Version 2)
Quarter: 2013Q2

REPORT INFORMATION
  Report Type: Spontaneous
  Country: FR (occurrence: FR)
  Receive Date: 20130419
  Receipt Date: 20130516
  Transmission Date: 20140414
  Serious: Yes (Hospitalization)
  Sender: FDA-Public Use
  Company Number: FR-SANOFI-AVENTIS-2013SA038618

PATIENT
  Age: 30 Year
  Sex: Female

DRUGS (4)
  1. LANTUS [Suspect]
     Indication: TYPE 2 DIABETES MELLITUS
     Route: 058
  2. IMPLANON [Suspect]
     Indication: CONTRACEPTION
     Dosage: TAKEN FROM 14-DEC-2012
     Route: 058
     Dates: start: 20091214
  3. NOVORAPID [Suspect]
     Indication: TYPE 2 DIABETES MELLITUS
     Route: 058
  4. GLUCOPHAGE [Suspect]
     Indication: DIABETES MELLITUS
     Route: 048

REACTIONS (1)
  - Splenic infarction [Recovered/Resolved]
